FAERS Safety Report 20487400 (Version 1)
Quarter: 2022Q1

REPORT INFORMATION
  Report Type: Spontaneous
  Country: US (occurrence: US)
  Receive Date: 20220218
  Receipt Date: 20220218
  Transmission Date: 20220423
  Serious: Yes (Hospitalization, Other)
  Sender: FDA-Public Use
  Company Number: US-MLMSERVICE-20220202-3351184-1

PATIENT
  Age: 62 Year
  Sex: Female

DRUGS (10)
  1. DEXAMETHASONE [Suspect]
     Active Substance: DEXAMETHASONE
     Indication: COVID-19 pneumonia
     Dosage: UNK
     Route: 065
     Dates: start: 202009
  2. INSULIN NOS [Concomitant]
     Active Substance: INSULIN NOS
     Indication: Type 2 diabetes mellitus
     Dosage: 10 INTERNATIONAL UNIT, ONCE A DAY
     Route: 065
     Dates: start: 202005, end: 202005
  3. INSULIN NOS [Concomitant]
     Active Substance: INSULIN NOS
     Dosage: 20 INTERNATIONAL UNIT, ONCE A DAY
     Dates: start: 202005, end: 20200601
  4. INSULIN NOS [Concomitant]
     Active Substance: INSULIN NOS
     Dosage: UNK (VERY SLOW TITRATION)
     Route: 065
     Dates: start: 202006, end: 202008
  5. INSULIN NOS [Concomitant]
     Active Substance: INSULIN NOS
     Dosage: 40 INTERNATIONAL UNIT, ONCE A DAY
     Route: 065
     Dates: start: 20200601, end: 202006
  6. INSULIN NOS [Concomitant]
     Active Substance: INSULIN NOS
     Dosage: 55 INTERNATIONAL UNIT, ONCE A DAY
     Route: 065
     Dates: start: 202008
  7. AZITHROMYCIN [Concomitant]
     Active Substance: AZITHROMYCIN
     Indication: Pneumonia bacterial
     Dosage: UNK
     Route: 065
     Dates: start: 202009
  8. METFORMIN [Concomitant]
     Active Substance: METFORMIN HYDROCHLORIDE
     Indication: Type 2 diabetes mellitus
     Dosage: 1000 MILLIGRAM, ONCE A DAY (EVENING)
     Route: 065
     Dates: end: 202009
  9. CEFDINIR [Concomitant]
     Active Substance: CEFDINIR
     Indication: Pneumonia bacterial
     Dosage: UNK
     Route: 065
     Dates: start: 202009
  10. REMDESIVIR [Concomitant]
     Active Substance: REMDESIVIR
     Indication: COVID-19 pneumonia
     Dosage: UNK
     Route: 065
     Dates: start: 202009

REACTIONS (1)
  - Hyperglycaemia [Recovering/Resolving]

NARRATIVE: CASE EVENT DATE: 20200901
